FAERS Safety Report 7457721-6 (Version None)
Quarter: 2011Q2

REPORT INFORMATION
  Report Type: 
  Country: None (occurrence: None)
  Receive Date: 20110504
  Receipt Date: 20110428
  Transmission Date: 20111010
  Serious: Yes (Hospitalization, Other)
  Sender: FDA-Public Use
  Company Number: CA-ABBOTT-11P-028-0719199-00

PATIENT
  Sex: Male

DRUGS (1)
  1. LUPRON DEPOT [Suspect]
     Indication: PROSTATE CANCER
     Dosage: 3 MONTHS DEPOT
     Route: 030
     Dates: start: 20070307

REACTIONS (4)
  - FALL [None]
  - LOWER LIMB FRACTURE [None]
  - HIP FRACTURE [None]
  - SURGERY [None]
